FAERS Safety Report 15823101 (Version 1)
Quarter: 2019Q1

REPORT INFORMATION
  Report Type: Spontaneous
  Country: GB (occurrence: PT)
  Receive Date: 20190114
  Receipt Date: 20190114
  Transmission Date: 20190417
  Serious: Yes (Hospitalization)
  Sender: FDA-Public Use
  Company Number: PT-FRESENIUS KABI-FK201900380

PATIENT
  Sex: Male

DRUGS (4)
  1. PREGABALIN. [Interacting]
     Active Substance: PREGABALIN
     Indication: BACK PAIN
     Route: 065
  2. CYCLOBENZAPRINE HYDROCHLORIDE. [Suspect]
     Active Substance: CYCLOBENZAPRINE HYDROCHLORIDE
     Indication: BACK PAIN
     Dosage: 15 MG, QD
     Route: 048
  3. METAMIZOLE SODIUM [Interacting]
     Active Substance: METAMIZOLE SODIUM
     Indication: BACK PAIN
     Route: 065
  4. METOCLOPRAMIDE (MANUFACTURER UNKNOWN) [Suspect]
     Active Substance: METOCLOPRAMIDE
     Indication: BACK PAIN
     Route: 065

REACTIONS (4)
  - Dyskinesia [Unknown]
  - Dysarthria [Unknown]
  - Ataxia [Unknown]
  - Drug interaction [Unknown]
